FAERS Safety Report 8493955-X (Version None)
Quarter: 2012Q3

REPORT INFORMATION
  Report Type: 
  Country: None (occurrence: None)
  Receive Date: 20120709
  Receipt Date: 20120625
  Transmission Date: 20120928
  Serious: Yes (Hospitalization, Other)
  Sender: FDA-Public Use
  Company Number: FR-AMGEN-FRASP2012035452

PATIENT
  Age: 77 Year
  Sex: Female

DRUGS (14)
  1. METHOTREXATE SODIUM [Suspect]
     Indication: RHEUMATOID ARTHRITIS
     Dosage: 6 DF, WEEKLY
     Route: 048
     Dates: start: 20101001, end: 20120401
  2. HYDROCORTISONE [Suspect]
     Indication: RHEUMATOID ARTHRITIS
     Dosage: 20 MG, 1X/DAY
     Route: 048
     Dates: start: 20101001
  3. OMEPRAZOLE [Concomitant]
     Dosage: UNK
  4. LEUCOVORIN CALCIUM [Concomitant]
     Dosage: UNK
  5. DUPHALAC [Concomitant]
     Dosage: UNK
  6. LEVOTHYROXINE SODIUM [Concomitant]
     Dosage: UNK
  7. PRAVASTATIN [Concomitant]
     Dosage: UNK
  8. FERROUS SULFATE TAB [Concomitant]
     Dosage: UNK
  9. ENBREL [Suspect]
     Indication: RHEUMATOID ARTHRITIS
     Dosage: 50 MG, WEEKLY
     Route: 058
     Dates: start: 20101001, end: 20120401
  10. ENALAPRIL MALEATE [Concomitant]
     Dosage: UNK
  11. AMLODIPINE BESYLATE [Concomitant]
     Dosage: UNK
  12. CITALOPRAM HYDROBROMIDE [Concomitant]
     Dosage: UNK
  13. ASPIRIN [Concomitant]
     Dosage: UNK
  14. ACETAMINOPHEN [Concomitant]
     Indication: PAIN
     Dosage: UNK

REACTIONS (9)
  - DECREASED APPETITE [None]
  - IMMUNOSUPPRESSION [None]
  - EPISTAXIS [None]
  - ASTHENIA [None]
  - LUNG DISORDER [None]
  - EPSTEIN-BARR VIRUS INFECTION [None]
  - RHEUMATOID LUNG [None]
  - PNEUMOCYSTIS JIROVECI PNEUMONIA [None]
  - INFLAMMATION [None]
